FAERS Safety Report 18376760 (Version 1)
Quarter: 2020Q4

REPORT INFORMATION
  Report Type: Spontaneous
  Country: US (occurrence: US)
  Receive Date: 20201012
  Receipt Date: 20201012
  Transmission Date: 20210114
  Serious: No
  Sender: FDA-Public Use
  Company Number: None

PATIENT
  Age: 36 Year
  Sex: Female
  Weight: 56.25 kg

DRUGS (22)
  1. EMGALITY [Suspect]
     Active Substance: GALCANEZUMAB-GNLM
     Indication: MIGRAINE
     Dosage: ?          OTHER FREQUENCY:MONTHLY;?
     Route: 058
     Dates: start: 20200320, end: 20200928
  2. TYLENOL PM [Concomitant]
     Active Substance: ACETAMINOPHEN\DIPHENHYDRAMINE
  3. LORAZEPAM (ATIVAN) 1 MG TABLET [Concomitant]
  4. MONTELUKAST (SINGULAIR) 10 MG TABS [Concomitant]
  5. GLUCAGON 3 MG/ACTUATION SPRY [Concomitant]
  6. ONDANSETRON (ZOFRAN) 4 MG TABLET [Concomitant]
  7. BACLOFEN 20 MG [Concomitant]
     Active Substance: BACLOFEN
  8. BUSPIRONE (BUSPAR) 5 MG TABLET [Concomitant]
  9. CYPROHEPTADINE (PERIACTIN) 2 MG/5 ML ORAL SYRUP [Concomitant]
  10. FEXOFENADINE (ALLEGRA ALLERGY) 180 MG TABS [Concomitant]
  11. OMEPRAZOLE (PRILOSEC) 40 MG DELAYED RELEASE CAPSULE [Concomitant]
  12. BUPIVACAINE (PF) (MARCAINE (PF)) 0.75% SOLN [Concomitant]
  13. KETOROLAC (TORADOL) 10 MG TABLET [Concomitant]
  14. CLONIDINE HCL (CATAPRES) 0.1 MG TABLET [Concomitant]
  15. LEVOTHYROXINE (SYNTHROID) 88 MCG TABLET [Concomitant]
  16. PRAZOSIN (MINIPRESS) 5 MG CAPSULE [Concomitant]
  17. DIAZOXIDE (DIABETIC USE) 50 MG/ML SUSP [Concomitant]
  18. GUANFACINE 3 MG TB24 [Concomitant]
  19. HYDROCORTISONE (CORTEF) 10 MG TABLET [Concomitant]
  20. SYMBICORT 160 / 4.5 MCG [Concomitant]
  21. HYDROCORTISONE, PF, (SOLU-CORTEF, PF,) 100 MG/2 ML SOLR [Concomitant]
  22. LINACLOTIDE (LINZESS) 290 MCG CAPS [Concomitant]

REACTIONS (4)
  - Injection site erythema [None]
  - Therapy cessation [None]
  - Injection site pain [None]
  - Injection site urticaria [None]

NARRATIVE: CASE EVENT DATE: 20200928
